FAERS Safety Report 5198933-4 (Version None)
Quarter: 2006Q4

REPORT INFORMATION
  Report Type: 
  Country: None (occurrence: None)
  Receive Date: 20060921
  Receipt Date: 20050906
  Transmission Date: 20070319
  Serious: Yes (Other)
  Sender: FDA-Public Use
  Company Number: 2005124825

PATIENT
  Age: 9 Year
  Sex: Male
  Weight: 20.0943 kg

DRUGS (2)
  1. DILANTIN [Suspect]
     Indication: CONVULSION
     Dosage: 100 MG (100 MG, 1 IN 1 D); 1.5 YEARS AGO
  2. MULTI-VITAMINS [Concomitant]

REACTIONS (1)
  - ALANINE AMINOTRANSFERASE ABNORMAL [None]
